FAERS Safety Report 4335509-2 (Version None)
Quarter: 2004Q2

REPORT INFORMATION
  Report Type: 
  Country: None (occurrence: None)
  Receive Date: 20040406
  Receipt Date: 20040324
  Transmission Date: 20050107
  Serious: Yes (Disabling)
  Sender: FDA-Public Use
  Company Number: 002#4#2003-00253

PATIENT
  Age: 56 Year
  Sex: Male

DRUGS (4)
  1. PPA/CPM075/8MG(OTC) (PHENYLPORPANOLAMINE HCL, CHLORPHENIRAMINE MALEATE [Suspect]
     Dosage: ORAL
     Route: 048
  2. ALKA-SELTZER-PLUS-COLD MEDICINE [Suspect]
     Dosage: ORAL
     Route: 048
  3. CELECOXIB [Concomitant]
  4. LOTREL [Concomitant]

REACTIONS (6)
  - DILATATION VENTRICULAR [None]
  - DYSARTHRIA [None]
  - FALL [None]
  - HAEMORRHAGIC STROKE [None]
  - HYPOAESTHESIA [None]
  - VENOUS INSUFFICIENCY [None]
